FAERS Safety Report 11590932 (Version 2)
Quarter: 2016Q1

REPORT INFORMATION
  Report Type: Spontaneous
  Country: FR (occurrence: FR)
  Receive Date: 20151003
  Receipt Date: 20160101
  Transmission Date: 20160525
  Serious: Yes (Other)
  Sender: FDA-Public Use
  Company Number: FR-AUROBINDO-AUR-APL-2015-08060

PATIENT
  Sex: Male
  Weight: 90 kg

DRUGS (6)
  1. ALLOPURINOL ARROW TABLETS [Interacting]
     Active Substance: ALLOPURINOL
     Indication: BLOOD URIC ACID
     Dosage: 200 MG, UNK
     Route: 048
  2. TERCIAN                            /00759301/ [Suspect]
     Active Substance: CYAMEMAZINE
     Indication: PRODUCT USED FOR UNKNOWN INDICATION
     Route: 065
  3. KETOPROFEN ARROW LP 100 MG SCORED TABLET EXTENDED RELEASE [Interacting]
     Active Substance: KETOPROFEN
     Indication: PAIN
     Dosage: UNK
     Route: 048
     Dates: start: 20140328
  4. ESCITALOPRAM ARROW FILM-COATED TABLETS [Interacting]
     Active Substance: ESCITALOPRAM OXALATE
     Indication: ANXIETY
     Dosage: 10 MG, UNK
     Route: 048
     Dates: start: 2014, end: 20150828
  5. ESCITALOPRAM ARROW FILM-COATED TABLETS [Interacting]
     Active Substance: ESCITALOPRAM OXALATE
     Dosage: 5 UNK, UNK
     Route: 048
     Dates: start: 20150828
  6. HYDROXYZINE ARROW FILM-COATED TABLET [Interacting]
     Active Substance: HYDROXYZINE HYDROCHLORIDE
     Indication: ANXIETY
     Dosage: 25 MG, UNK
     Route: 048
     Dates: start: 20150404, end: 20150902

REACTIONS (3)
  - Drug interaction [Unknown]
  - Chest discomfort [Unknown]
  - Contraindicated drug administered [Recovered/Resolved]
